FAERS Safety Report 5936741-4 (Version None)
Quarter: 2008Q4

REPORT INFORMATION
  Report Type: 
  Country: None (occurrence: None)
  Receive Date: 20081030
  Receipt Date: 20081024
  Transmission Date: 20090506
  Serious: Yes (Hospitalization, Other)
  Sender: FDA-Public Use
  Company Number: US-GILEAD-2008-0018400

PATIENT
  Sex: Female
  Weight: 85.806 kg

DRUGS (11)
  1. LETAIRIS [Suspect]
     Indication: PULMONARY ARTERIAL HYPERTENSION
     Route: 048
     Dates: start: 20080813, end: 20080901
  2. ALLOPURINOL [Concomitant]
  3. BUMEX [Concomitant]
  4. FOSAMAX [Concomitant]
  5. COREG CR [Concomitant]
  6. XANAX [Concomitant]
  7. NASACORT [Concomitant]
  8. ATACAND [Concomitant]
  9. NEXIUM [Concomitant]
  10. MULTI-VITAMIN [Concomitant]
  11. PREDNISONE TAB [Concomitant]

REACTIONS (1)
  - METASTASES TO LIVER [None]
